FAERS Safety Report 8255657-4 (Version None)
Quarter: 2012Q2

REPORT INFORMATION
  Report Type: 
  Country: None (occurrence: None)
  Receive Date: 20120403
  Receipt Date: 20120326
  Transmission Date: 20120825
  Serious: Yes (Other)
  Sender: FDA-Public Use
  Company Number: PHHY2012BR005933

PATIENT
  Age: 63 Year
  Sex: Female

DRUGS (2)
  1. ZEPSIN [Concomitant]
     Dosage: 1 DF, UNK
  2. DIOVAN HCT [Suspect]
     Indication: HYPERTENSION
     Dosage: ONE TABLET (160/12.5 MG) A DAY

REACTIONS (2)
  - ASTHMA [None]
  - DYSPNOEA [None]
